FAERS Safety Report 6019353-6 (Version None)
Quarter: 2008Q4

REPORT INFORMATION
  Report Type: 
  Country: None (occurrence: None)
  Receive Date: 20081224
  Receipt Date: 20081121
  Transmission Date: 20090506
  Serious: Yes (Hospitalization, Other)
  Sender: FDA-Public Use
  Company Number: US-ELI_LILLY_AND_COMPANY-US200811004720

PATIENT
  Sex: Male

DRUGS (5)
  1. HUMALOG [Suspect]
     Dates: end: 20081115
  2. HUMALOG [Suspect]
     Dosage: UNK, UNK
     Dates: start: 20081115, end: 20081101
  3. HUMALOG [Suspect]
     Dosage: 15 U, UNK
     Dates: start: 20081116, end: 20081116
  4. SODIUM CHLORIDE 0.9% [Suspect]
  5. NOVOLOG [Concomitant]
     Dates: start: 20081101

REACTIONS (3)
  - BLOOD GLUCOSE INCREASED [None]
  - DRUG INEFFECTIVE [None]
  - WRONG DRUG ADMINISTERED [None]
